FAERS Safety Report 16558247 (Version 1)
Quarter: 2019Q3

REPORT INFORMATION
  Report Type: Spontaneous
  Country: GB (occurrence: GB)
  Receive Date: 20190711
  Receipt Date: 20190711
  Transmission Date: 20191004
  Serious: Yes (Hospitalization)
  Sender: FDA-Public Use
  Company Number: GB-ACCORD-137418

PATIENT
  Age: 98 Year
  Sex: Female

DRUGS (10)
  1. BENDROFLUMETHIAZIDE [Suspect]
     Active Substance: BENDROFLUMETHIAZIDE
     Indication: PRODUCT USED FOR UNKNOWN INDICATION
  2. ACETYLSALICYLIC ACID [Concomitant]
     Active Substance: ASPIRIN
  3. ENOXAPARIN [Concomitant]
     Active Substance: ENOXAPARIN
  4. OMEPRAZOLE. [Concomitant]
     Active Substance: OMEPRAZOLE
  5. ADCAL-D3 [Concomitant]
     Active Substance: CALCIUM CARBONATE\CHOLECALCIFEROL
  6. PARACETAMOL [Concomitant]
     Active Substance: ACETAMINOPHEN
  7. ATORVASTATIN [Concomitant]
     Active Substance: ATORVASTATIN
  8. FUROSEMIDE. [Suspect]
     Active Substance: FUROSEMIDE
     Indication: OEDEMA PERIPHERAL
     Dosage: 40MG ONCE DAILY IN THE MORNING
     Route: 048
     Dates: start: 20180801, end: 20190601
  9. DULOXETINE. [Concomitant]
     Active Substance: DULOXETINE
  10. BISOPROLOL [Concomitant]
     Active Substance: BISOPROLOL

REACTIONS (5)
  - Confusional state [Unknown]
  - Acute kidney injury [Recovered/Resolved]
  - Lower respiratory tract infection [Unknown]
  - Dyspnoea [Unknown]
  - Hypophagia [Unknown]

NARRATIVE: CASE EVENT DATE: 20190531
